FAERS Safety Report 16357503 (Version 1)
Quarter: 2019Q2

REPORT INFORMATION
  Report Type: Spontaneous
  Country: DE (occurrence: DE)
  Receive Date: 20190527
  Receipt Date: 20190527
  Transmission Date: 20190711
  Serious: Yes (Other)
  Sender: FDA-Public Use
  Company Number: DE-ASTRAZENECA-2019SE75766

PATIENT

DRUGS (4)
  1. DABRAFENIB [Concomitant]
     Active Substance: DABRAFENIB
     Indication: NON-SMALL CELL LUNG CANCER
     Dosage: IN COMBINATION WITH OSIMERTINIB
     Route: 065
  2. OSIMERTINIB. [Suspect]
     Active Substance: OSIMERTINIB
     Indication: NON-SMALL CELL LUNG CANCER
     Dosage: IN COMBINATION WITH DABRAFENIB
     Route: 048
  3. DABRAFENIB [Concomitant]
     Active Substance: DABRAFENIB
     Indication: NON-SMALL CELL LUNG CANCER
     Dosage: IN COMBINATION WITH TRAMETINIB
     Route: 065
  4. OSIMERTINIB. [Suspect]
     Active Substance: OSIMERTINIB
     Indication: NON-SMALL CELL LUNG CANCER
     Route: 048

REACTIONS (3)
  - BRAF gene mutation [Unknown]
  - Malignant neoplasm progression [Unknown]
  - Drug resistance [Unknown]
